FAERS Safety Report 21223117 (Version 1)
Quarter: 2022Q3

REPORT INFORMATION
  Report Type: Report from Study
  Country: CA (occurrence: CA)
  Receive Date: 20220817
  Receipt Date: 20220817
  Transmission Date: 20221027
  Serious: Yes (Other)
  Sender: FDA-Public Use
  Company Number: CA-JNJFOC-20220823822

PATIENT
  Age: 50 Year
  Sex: Female

DRUGS (1)
  1. REMICADE [Suspect]
     Active Substance: INFLIXIMAB
     Indication: Crohn^s disease
     Dosage: PATIENT RECEIVED 70 TH REMICADE INFUSION ON 10-AUG-2022. PARTIAL HARVEY-BRADSHAW COMPLETED. THERAPY
     Route: 041
     Dates: start: 20150604

REACTIONS (4)
  - Abdominal pain [Unknown]
  - Frequent bowel movements [Unknown]
  - Diarrhoea [Unknown]
  - General physical health deterioration [Unknown]

NARRATIVE: CASE EVENT DATE: 20220809
